FAERS Safety Report 6923355-2 (Version None)
Quarter: 2010Q3

REPORT INFORMATION
  Report Type: 
  Country: None (occurrence: None)
  Receive Date: 20100813
  Receipt Date: 20100804
  Transmission Date: 20110219
  Serious: Yes (Hospitalization)
  Sender: FDA-Public Use
  Company Number: US-JNJFOC-20100801657

PATIENT
  Age: 20 Month
  Sex: Male

DRUGS (3)
  1. MOTRIN [Suspect]
     Indication: ACCIDENTAL EXPOSURE
     Route: 048
  2. SUBOXONE [Suspect]
     Indication: ACCIDENTAL EXPOSURE
  3. PHENERGAN [Suspect]
     Indication: ACCIDENTAL EXPOSURE

REACTIONS (2)
  - ACCIDENTAL DRUG INTAKE BY CHILD [None]
  - DRUG TOXICITY [None]
